FAERS Safety Report 10103494 (Version 1)
Quarter: 2014Q2

REPORT INFORMATION
  Report Type: Spontaneous
  Country: US (occurrence: US)
  Receive Date: 20140424
  Receipt Date: 20140424
  Transmission Date: 20141212
  Serious: No
  Sender: FDA-Public Use
  Company Number: US-BRISTOL-MYERS SQUIBB COMPANY-20453585

PATIENT
  Age: 73 Year
  Sex: Male
  Weight: 73.47 kg

DRUGS (9)
  1. ELIQUIS [Suspect]
     Dates: start: 20140307
  2. PLAVIX [Concomitant]
     Dosage: DOSAGE:QOD SINCE 08MAR14
  3. NORVASC [Concomitant]
  4. FUROSEMIDE [Concomitant]
  5. PRAVASTATINE [Concomitant]
  6. LISINOPRIL [Concomitant]
  7. METOPROLOL [Concomitant]
  8. TEMAZEPAM [Concomitant]
     Dosage: AT NIGHT
  9. VIAGRA [Concomitant]

REACTIONS (1)
  - Eyelid oedema [Unknown]
